FAERS Safety Report 9166866 (Version 4)
Quarter: 2013Q2

REPORT INFORMATION
  Report Type: Report from Study
  Country: US (occurrence: US)
  Receive Date: 20130316
  Receipt Date: 20130625
  Transmission Date: 20140414
  Serious: Yes (Other)
  Sender: FDA-Public Use
  Company Number: US-ABBOTT-13P-163-1062147-00

PATIENT
  Age: 29 Year
  Sex: Male
  Weight: 69.01 kg

DRUGS (4)
  1. HUMIRA [Suspect]
     Indication: CROHN^S DISEASE
     Dates: start: 20121121
  2. PREDNISONE [Concomitant]
     Indication: PRODUCT USED FOR UNKNOWN INDICATION
     Dates: start: 201302
  3. PREDNISONE [Concomitant]
  4. HYDROCODONE [Concomitant]
     Indication: PAIN
     Dosage: AS REQUIRED

REACTIONS (1)
  - Ileocolectomy [Unknown]
